FAERS Safety Report 23515459 (Version 2)
Quarter: 2025Q1

REPORT INFORMATION
  Report Type: Spontaneous
  Country: CN (occurrence: CN)
  Receive Date: 20240213
  Receipt Date: 20250303
  Transmission Date: 20250409
  Serious: Yes (Death)
  Sender: PAREXEL
  Company Number: CN-SHANGHAI JUNSHI BIOSCIENCES CO., LTD.-CN2023008920

PATIENT

DRUGS (21)
  1. TORIPALIMAB [Suspect]
     Active Substance: TORIPALIMAB
     Indication: Hypopharyngeal cancer
     Route: 041
     Dates: start: 20231128
  2. TORIPALIMAB [Suspect]
     Active Substance: TORIPALIMAB
     Indication: Laryngeal squamous cell carcinoma
     Route: 041
     Dates: start: 20231219
  3. TORIPALIMAB [Suspect]
     Active Substance: TORIPALIMAB
     Indication: Metastases to lymph nodes
  4. DOCETAXEL [Concomitant]
     Active Substance: DOCETAXEL
     Indication: Hypopharyngeal cancer
     Route: 041
     Dates: start: 20231128
  5. DOCETAXEL [Concomitant]
     Active Substance: DOCETAXEL
     Indication: Laryngeal squamous cell carcinoma
  6. DOCETAXEL [Concomitant]
     Active Substance: DOCETAXEL
     Indication: Metastases to lymph nodes
  7. CISPLATIN [Concomitant]
     Active Substance: CISPLATIN
     Indication: Hypopharyngeal cancer
     Route: 041
     Dates: start: 20231128
  8. CISPLATIN [Concomitant]
     Active Substance: CISPLATIN
     Indication: Laryngeal squamous cell carcinoma
  9. CISPLATIN [Concomitant]
     Active Substance: CISPLATIN
     Indication: Metastases to lymph nodes
  10. DEXAMETHASONE [Concomitant]
     Active Substance: DEXAMETHASONE
     Indication: Prophylaxis
     Route: 048
     Dates: start: 20231128
  11. GLUTATHIONE [Concomitant]
     Active Substance: GLUTATHIONE
     Indication: Symptomatic treatment
     Route: 041
     Dates: start: 20231201
  12. PALONOSETRON HYDROCHLORIDE [Concomitant]
     Active Substance: PALONOSETRON HYDROCHLORIDE
     Indication: Symptomatic treatment
     Route: 041
     Dates: start: 20231201
  13. VITAMIN B6 [Concomitant]
     Active Substance: PYRIDOXINE HYDROCHLORIDE
     Indication: Symptomatic treatment
     Route: 041
     Dates: start: 20231201
  14. POTASSIUM CHLORIDE [Concomitant]
     Active Substance: POTASSIUM CHLORIDE
     Indication: Symptomatic treatment
     Route: 041
     Dates: start: 20231201
  15. OMEPRAZOLE [Concomitant]
     Active Substance: OMEPRAZOLE
     Indication: Symptomatic treatment
     Route: 041
     Dates: start: 20231201
  16. PEGYLATED GRANULOCYTE COLONY-STIMULATING FACTOR [Concomitant]
     Active Substance: PEGYLATED GRANULOCYTE COLONY-STIMULATING FACTOR
     Indication: Prophylaxis
     Route: 058
     Dates: start: 20231201
  17. Huiyu [Concomitant]
     Indication: Hypopharyngeal cancer
     Route: 041
     Dates: start: 20231128
  18. Huiyu [Concomitant]
     Indication: Laryngeal squamous cell carcinoma
  19. Atuomolan [Concomitant]
     Indication: Symptomatic treatment
     Route: 041
  20. Ousai [Concomitant]
     Indication: Symptomatic treatment
     Route: 041
  21. Triple Aosen [Concomitant]
     Indication: Symptomatic treatment
     Route: 041

REACTIONS (2)
  - Anaphylactic shock [Fatal]
  - Off label use [Unknown]

NARRATIVE: CASE EVENT DATE: 20231219
